FAERS Safety Report 8027794-0 (Version None)
Quarter: 2012Q1

REPORT INFORMATION
  Report Type: 
  Country: None (occurrence: None)
  Receive Date: 20120106
  Receipt Date: 20111227
  Transmission Date: 20120608
  Serious: Yes (Other)
  Sender: FDA-Public Use
  Company Number: DE-UCBSA-048631

PATIENT
  Sex: Female

DRUGS (7)
  1. LYRICA [Concomitant]
     Indication: HERPES ZOSTER
     Dates: start: 20111111
  2. CERTOLIZUMAB PEGOL [Suspect]
     Indication: RHEUMATOID ARTHRITIS
     Route: 058
     Dates: start: 20110101
  3. CERTOLIZUMAB PEGOL [Suspect]
     Route: 058
     Dates: start: 20110929, end: 20110101
  4. ZOSTEX [Concomitant]
     Indication: HERPES ZOSTER
     Dates: start: 20111101, end: 20111107
  5. TRAMADOL HCL [Concomitant]
     Indication: HERPES ZOSTER
     Dates: start: 20111101, end: 20111110
  6. METHOTREXATE [Concomitant]
     Indication: RHEUMATOID ARTHRITIS
     Dates: start: 20090701
  7. NOVALGIN [Concomitant]
     Indication: HERPES ZOSTER
     Dosage: SOLUTION/DROPS
     Dates: start: 20111101, end: 20111110

REACTIONS (2)
  - HERPES ZOSTER [None]
  - PSORIASIS [None]
